FAERS Safety Report 4317669-2 (Version None)
Quarter: 2004Q1

REPORT INFORMATION
  Report Type: 
  Country: None (occurrence: None)
  Receive Date: 20040315
  Receipt Date: 20031209
  Transmission Date: 20041129
  Serious: Yes (Hospitalization, Disabling)
  Sender: FDA-Public Use
  Company Number: WAES 0312USA00992

PATIENT
  Age: 52 Year
  Sex: Female
  Weight: 68 kg

DRUGS (10)
  1. ASPIRIN [Concomitant]
     Dates: start: 20010101
  2. VASOTEC [Concomitant]
     Indication: HYPERTENSION
     Route: 048
     Dates: start: 19990101
  3. PREMPRO [Concomitant]
     Indication: HORMONE LEVEL ABNORMAL
     Dates: start: 20010207, end: 20011202
  4. ALLEGRA-D [Concomitant]
  5. AMARYL [Concomitant]
     Indication: DIABETES MELLITUS
     Dates: start: 19990101
  6. LEVOXYL [Concomitant]
     Indication: THYROID DISORDER
     Dates: start: 20010101
  7. TOPROL-XL [Concomitant]
     Indication: HYPERTENSION
     Dates: start: 19991213
  8. UNIVASC [Concomitant]
  9. NITROSTAT [Concomitant]
  10. VIOXX [Suspect]
     Indication: OSTEOARTHRITIS
     Route: 048
     Dates: start: 20010401, end: 20011202

REACTIONS (30)
  - ARTHRALGIA [None]
  - BLOOD PRESSURE SYSTOLIC INCREASED [None]
  - CAROTID ARTERY STENOSIS [None]
  - CEREBRAL ARTERY OCCLUSION [None]
  - CEREBRAL INFARCTION [None]
  - CEREBROVASCULAR ACCIDENT [None]
  - CIRCULATORY COLLAPSE [None]
  - DEPRESSION [None]
  - DIABETES MELLITUS NON-INSULIN-DEPENDENT [None]
  - DILATATION ATRIAL [None]
  - DYSKINESIA [None]
  - DYSSTASIA [None]
  - EXTENSOR PLANTAR RESPONSE [None]
  - FALL [None]
  - HEADACHE [None]
  - HEART RATE INCREASED [None]
  - HYPERTENSION [None]
  - HYPOREFLEXIA [None]
  - HYPOTHYROIDISM [None]
  - INTRACRANIAL ANEURYSM [None]
  - MITRAL VALVE INCOMPETENCE [None]
  - MITRAL VALVE SCLEROSIS [None]
  - MOVEMENT DISORDER [None]
  - MUSCLE CRAMP [None]
  - MUSCLE DISORDER [None]
  - PAIN IN EXTREMITY [None]
  - PCO2 DECREASED [None]
  - PLATELET COUNT DECREASED [None]
  - RESPIRATORY RATE INCREASED [None]
  - TROPONIN INCREASED [None]
